FAERS Safety Report 10178008 (Version 1)
Quarter: 2014Q2

REPORT INFORMATION
  Report Type: Spontaneous
  Country: US (occurrence: US)
  Receive Date: 20140517
  Receipt Date: 20140517
  Transmission Date: 20141212
  Serious: Yes (Other)
  Sender: FDA-Public Use
  Company Number: US-ROCHE-1402480

PATIENT
  Sex: Male

DRUGS (1)
  1. XELODA [Suspect]
     Indication: RECTAL CANCER
     Route: 065
     Dates: start: 20140208, end: 20140513

REACTIONS (2)
  - Renal disorder [Not Recovered/Not Resolved]
  - Liver injury [Not Recovered/Not Resolved]
